FAERS Safety Report 9300169 (Version 1)
Quarter: 2013Q1

REPORT INFORMATION
  Report Type: Spontaneous
  Country: US (occurrence: None)
  Receive Date: 20130107
  Receipt Date: 20130107
  Transmission Date: 20140127
  Serious: Yes (Other)
  Sender: FDA-Public Use
  Company Number: PHEH2012US021753

PATIENT
  Age: 49 Year
  Sex: Male

DRUGS (9)
  1. GILENYA (FTY) CAPSULE, 0.5MG [Suspect]
     Indication: RELAPSING-REMITTING MULTIPLE SCLEROSIS
     Route: 048
     Dates: start: 2011, end: 201105
  2. ANDROGEL (TESTOSTERONE) [Concomitant]
  3. NSAID^S (NO INGREDIENTS/SUBSTANCES) [Concomitant]
  4. ACETAMINOPHEN(PARACETAMOL) [Concomitant]
  5. STEROIDS NOS (NO INGREDIENTS/SUBSTANCES) [Concomitant]
  6. CLARITIN (LORATADINE) [Concomitant]
  7. VITAMIN B 12 (VITAMIN B NOS) [Concomitant]
  8. PLANKTON [Concomitant]
  9. TESTOSTERON (TESTOSTERONE PROPIONATE) [Concomitant]

REACTIONS (4)
  - Depression [None]
  - Post concussion syndrome [None]
  - Road traffic accident [None]
  - Depressed mood [None]
